FAERS Safety Report 23256203 (Version 1)
Quarter: 2023Q4

REPORT INFORMATION
  Report Type: Spontaneous
  Country: US (occurrence: US)
  Receive Date: 20231204
  Receipt Date: 20231204
  Transmission Date: 20240109
  Serious: Yes (Other)
  Sender: FDA-Public Use
  Company Number: US-drreddys-SPO/USA/23/0187682

PATIENT
  Age: 35 Year
  Sex: Female

DRUGS (3)
  1. DEXAMETHASONE [Suspect]
     Active Substance: DEXAMETHASONE
     Indication: Product used for unknown indication
  2. PREDNISONE [Suspect]
     Active Substance: PREDNISONE
     Indication: Rheumatoid arthritis
     Dosage: 10MG-20MG FOR FOR 2-3 YEARS
  3. PREDNISONE [Suspect]
     Active Substance: PREDNISONE
     Dosage: 10MG-20MG FOR FOR 2-3 YEARS

REACTIONS (1)
  - Cushing^s syndrome [Recovered/Resolved]
